FAERS Safety Report 5091654-8 (Version None)
Quarter: 2006Q3

REPORT INFORMATION
  Report Type: 
  Country: None (occurrence: None)
  Receive Date: 20060829
  Receipt Date: 20051226
  Transmission Date: 20061208
  Serious: Yes (Hospitalization, Other)
  Sender: FDA-Public Use
  Company Number: JP-SANOFI-SYNTHELABO-F01200502867

PATIENT
  Sex: Female

DRUGS (3)
  1. CALCIUM LEVOFOLINATE [Suspect]
     Route: 042
     Dates: start: 20051004, end: 20051005
  2. FLUOROURACIL [Suspect]
     Dosage: 530MG/BODY IN BOLUS THEN 800MG/BODY AS CONTINUOUS INFUSION ON DAYS 1 AND 2) (FOLFOX-4, Q2W
     Route: 040
     Dates: start: 20051004, end: 20051005
  3. OXALIPLATIN [Suspect]
     Indication: COLON CANCER
     Route: 042
     Dates: start: 20051004, end: 20051004

REACTIONS (4)
  - DISSEMINATED INTRAVASCULAR COAGULATION [None]
  - NEUTROPENIA [None]
  - PANCYTOPENIA [None]
  - SEPSIS [None]
